FAERS Safety Report 15887885 (Version 1)
Quarter: 2019Q1

REPORT INFORMATION
  Report Type: Spontaneous
  Country: CA (occurrence: CA)
  Receive Date: 20190130
  Receipt Date: 20190130
  Transmission Date: 20190417
  Serious: Yes (Other)
  Sender: FDA-Public Use
  Company Number: CA-ORION CORPORATION ORION PHARMA-TREX2019-0281

PATIENT
  Age: 56 Year
  Sex: Female

DRUGS (5)
  1. XELJANZ [Suspect]
     Active Substance: TOFACITINIB CITRATE
     Indication: RHEUMATOID ARTHRITIS
     Route: 048
     Dates: start: 20141228, end: 20150502
  2. XELJANZ [Suspect]
     Active Substance: TOFACITINIB CITRATE
     Route: 048
     Dates: start: 20150622, end: 201511
  3. SULFASALAZINE. [Concomitant]
     Active Substance: SULFASALAZINE
     Route: 065
  4. METHOTREXATE (TRADE NAME UNKNOWN) [Suspect]
     Active Substance: METHOTREXATE
     Indication: RHEUMATOID ARTHRITIS
     Route: 065
  5. XELJANZ [Suspect]
     Active Substance: TOFACITINIB CITRATE
     Route: 048

REACTIONS (16)
  - Pyrexia [Recovered/Resolved]
  - Nasopharyngitis [Unknown]
  - Foot fracture [Recovering/Resolving]
  - Fall [Unknown]
  - Drug ineffective [Unknown]
  - Lower respiratory tract infection [Recovering/Resolving]
  - Wrist fracture [Recovering/Resolving]
  - Ill-defined disorder [Recovered/Resolved]
  - Fatigue [Not Recovered/Not Resolved]
  - Gastric infection [Recovering/Resolving]
  - Joint effusion [Unknown]
  - Weight increased [Not Recovered/Not Resolved]
  - Influenza [Recovered/Resolved]
  - Localised infection [Not Recovered/Not Resolved]
  - Gastritis [Not Recovered/Not Resolved]
  - White blood cell count increased [Unknown]

NARRATIVE: CASE EVENT DATE: 2015
